FAERS Safety Report 7298338-6 (Version None)
Quarter: 2011Q1

REPORT INFORMATION
  Report Type: 
  Country: None (occurrence: None)
  Receive Date: 20110217
  Receipt Date: 20110215
  Transmission Date: 20110831
  Serious: Yes (Death, Other)
  Sender: FDA-Public Use
  Company Number: DE-JNJFOC-20110105437

PATIENT
  Age: 82 Year
  Sex: Male

DRUGS (2)
  1. FENTANYL [Suspect]
     Route: 062
  2. FENTANYL [Suspect]
     Indication: TUMOUR PAIN
     Dosage: 3 PATCHS
     Route: 062

REACTIONS (2)
  - OVERDOSE [None]
  - HYPERAESTHESIA [None]
